FAERS Safety Report 8869041 (Version 1)
Quarter: 2012Q4

REPORT INFORMATION
  Report Type: 
  Country: US (occurrence: US)
  Receive Date: 20121023
  Receipt Date: 20121023
  Transmission Date: 20130627
  Serious: No
  Sender: FDA-Public Use
  Company Number: US-AMGEN-USASP2012053687

PATIENT
  Age: 42 Year
  Sex: Male
  Weight: 108.84 kg

DRUGS (2)
  1. ENBREL [Suspect]
     Indication: PRODUCT USED FOR UNKNOWN INDICATION
     Dosage: 50 mg, qwk
     Route: 058
  2. LODINE [Concomitant]
     Dosage: UNK

REACTIONS (2)
  - Influenza [Recovering/Resolving]
  - Condition aggravated [Recovering/Resolving]
